FAERS Safety Report 6735343-X (Version None)
Quarter: 2010Q2

REPORT INFORMATION
  Report Type: 
  Country: None (occurrence: None)
  Receive Date: 20100520
  Receipt Date: 20100520
  Transmission Date: 20101027
  Serious: No
  Sender: FDA-Public Use
  Company Number: None

PATIENT
  Age: 50 Year
  Sex: Female
  Weight: 74.3899 kg

DRUGS (1)
  1. REMBRANDT TWO HOUR [Suspect]
     Indication: TOOTH DISCOLOURATION
     Dosage: FOUR APPLICATIONS 20 MIN EACH DENTAL
     Route: 004
     Dates: start: 20100517, end: 20100517

REACTIONS (7)
  - BURNING SENSATION [None]
  - FEEDING DISORDER [None]
  - GINGIVAL PAIN [None]
  - LIP DISORDER [None]
  - LIP PAIN [None]
  - LIP SWELLING [None]
  - SWELLING FACE [None]
